FAERS Safety Report 19193099 (Version 3)
Quarter: 2021Q2

REPORT INFORMATION
  Report Type: Spontaneous
  Country: CN (occurrence: CN)
  Receive Date: 20210428
  Receipt Date: 20210517
  Transmission Date: 20210717
  Serious: Yes (Death, Life-Threatening, Hospitalization, Other)
  Sender: FDA-Public Use
  Company Number: CN-ASTRAZENECA-2021A364487

PATIENT
  Age: 59 Year
  Sex: Male

DRUGS (2)
  1. AUMOLERTINIB. [Suspect]
     Active Substance: AUMOLERTINIB
     Indication: LUNG NEOPLASM MALIGNANT
     Route: 048
     Dates: start: 20210115
  2. TAGRISSO [Suspect]
     Active Substance: OSIMERTINIB
     Indication: LUNG NEOPLASM MALIGNANT
     Route: 048
     Dates: start: 20210415, end: 20210420

REACTIONS (6)
  - Pulmonary oedema [Recovering/Resolving]
  - Asphyxia [Fatal]
  - Interstitial lung disease [Recovering/Resolving]
  - Cardiac failure [Recovering/Resolving]
  - Respiratory failure [Recovering/Resolving]
  - Intentional product misuse [Recovered/Resolved]

NARRATIVE: CASE EVENT DATE: 20210415
